FAERS Safety Report 15416253 (Version 1)
Quarter: 2018Q3

REPORT INFORMATION
  Report Type: Spontaneous
  Country: US (occurrence: US)
  Receive Date: 20180923
  Receipt Date: 20180923
  Transmission Date: 20181010
  Serious: Yes (Death, Other)
  Sender: FDA-Public Use
  Company Number: US-BAXTER-2018BAX024312

PATIENT
  Age: 4 Day
  Sex: Male

DRUGS (4)
  1. ONDANSETRON INJECTION, USP?SINGLE DOSE [Suspect]
     Active Substance: ONDANSETRON
     Indication: FOETAL EXPOSURE TIMING UNSPECIFIED
     Route: 064
  2. SERTRALINE [Suspect]
     Active Substance: SERTRALINE HYDROCHLORIDE
     Indication: FOETAL EXPOSURE TIMING UNSPECIFIED
     Dosage: (MOTHER DOSE: INITIAL TWO TRIMESTERS)
     Route: 064
  3. ESCITALOPRAM [Suspect]
     Active Substance: ESCITALOPRAM OXALATE
     Indication: FOETAL EXPOSURE TIMING UNSPECIFIED
     Dosage: (MOTHER DOSE: FINAL TRIMESTER)
     Route: 064
  4. PROGESTERONE. [Suspect]
     Active Substance: PROGESTERONE
     Indication: FOETAL EXPOSURE TIMING UNSPECIFIED
     Dosage: (MOTHER DOSE: HIGH?DOSE PROGESTERONE FROM 16 WEEKS OF GESTATION)
     Route: 064

REACTIONS (4)
  - Human herpesvirus 6 infection [Not Recovered/Not Resolved]
  - Congestive cardiomyopathy [Fatal]
  - Heart disease congenital [Fatal]
  - Foetal exposure during pregnancy [Recovered/Resolved]
